FAERS Safety Report 8739839 (Version 5)
Quarter: 2013Q1

REPORT INFORMATION
  Report Type: Report from Study
  Country: US (occurrence: US)
  Receive Date: 20120823
  Receipt Date: 20130122
  Transmission Date: 20140127
  Serious: Yes (Hospitalization, Other)
  Sender: FDA-Public Use
  Company Number: US-ROCHE-1101070

PATIENT
  Age: 47 None
  Sex: Female
  Weight: 99.88 kg

DRUGS (6)
  1. VEMURAFENIB [Suspect]
     Indication: METASTATIC MALIGNANT MELANOMA
     Route: 048
     Dates: start: 201202, end: 20121219
  2. ATARAX [Concomitant]
     Indication: SKIN REACTION
     Route: 048
  3. METHADONE [Concomitant]
     Indication: PAIN MANAGEMENT
     Route: 048
  4. OXYCODONE [Concomitant]
     Indication: PAIN MANAGEMENT
     Route: 048
  5. KLONOPIN [Concomitant]
     Indication: PAIN IN EXTREMITY
     Route: 048
  6. PREDNISONE [Concomitant]
     Route: 048

REACTIONS (24)
  - Erythema [Recovered/Resolved]
  - Skin oedema [Recovered/Resolved]
  - Stomatitis [Not Recovered/Not Resolved]
  - Lacrimation increased [Not Recovered/Not Resolved]
  - Ocular hyperaemia [Not Recovered/Not Resolved]
  - Vision blurred [Not Recovered/Not Resolved]
  - Skin papilloma [Not Recovered/Not Resolved]
  - Neoplasm skin [Not Recovered/Not Resolved]
  - Neuropathy peripheral [Unknown]
  - Dermal cyst [Unknown]
  - Cellulitis [Unknown]
  - Chest discomfort [Recovered/Resolved]
  - Electrocardiogram QT prolonged [Unknown]
  - Erythema [Not Recovered/Not Resolved]
  - Pain in extremity [Not Recovered/Not Resolved]
  - Rash [Not Recovered/Not Resolved]
  - Rib fracture [Not Recovered/Not Resolved]
  - Muscle spasms [Not Recovered/Not Resolved]
  - Pain [Not Recovered/Not Resolved]
  - Drug ineffective [Unknown]
  - Herpes zoster [Unknown]
  - Urticaria [Unknown]
  - Pneumonia [Unknown]
  - Kidney infection [Unknown]
